FAERS Safety Report 20743421 (Version 1)
Quarter: 2022Q2

REPORT INFORMATION
  Report Type: Report from Study
  Country: CO (occurrence: CO)
  Receive Date: 20220425
  Receipt Date: 20220425
  Transmission Date: 20220720
  Serious: Yes (Death)
  Sender: FDA-Public Use
  Company Number: CO-ABBVIE-22K-036-4312959-00

PATIENT
  Sex: Male
  Weight: 78 kg

DRUGS (2)
  1. ZEMPLAR [Suspect]
     Active Substance: PARICALCITOL
     Indication: Hyperparathyroidism secondary
     Route: 042
     Dates: start: 20161129, end: 2022
  2. ZEMPLAR [Suspect]
     Active Substance: PARICALCITOL
     Indication: Chronic kidney disease
     Dosage: DOSE DECREASED
     Route: 042
     Dates: start: 2022

REACTIONS (2)
  - Death [Fatal]
  - Blood phosphorus abnormal [Unknown]

NARRATIVE: CASE EVENT DATE: 20220101
